FAERS Safety Report 4883852-0 (Version None)
Quarter: 2006Q1

REPORT INFORMATION
  Report Type: 
  Country: None (occurrence: None)
  Receive Date: 20060112
  Receipt Date: 20060105
  Transmission Date: 20060701
  Serious: Yes (Other)
  Sender: FDA-Public Use
  Company Number: 200610053GDS

PATIENT
  Sex: Male

DRUGS (2)
  1. ASPIRIN [Suspect]
     Dosage: 81 MG, TOTAL DAILY, ORAL
     Route: 048
  2. LIPITOR [Concomitant]

REACTIONS (2)
  - HYPOAESTHESIA [None]
  - PARALYSIS [None]
